FAERS Safety Report 8597600-4 (Version None)
Quarter: 2012Q3

REPORT INFORMATION
  Report Type: 
  Country: None (occurrence: None)
  Receive Date: 20120816
  Receipt Date: 20120808
  Transmission Date: 20120928
  Serious: Yes (Hospitalization)
  Sender: FDA-Public Use
  Company Number: US-BAYER-2012-081423

PATIENT
  Age: 37 Year
  Sex: Female
  Weight: 57.596 kg

DRUGS (25)
  1. YAZ [Suspect]
  2. PRISTIQ [Concomitant]
     Dosage: 50 MG, UNK
     Route: 048
     Dates: start: 20110826
  3. VENTOLIN [Concomitant]
     Dosage: 90 ?G, UNK
     Route: 045
     Dates: start: 20110826
  4. QVAR 40 [Concomitant]
     Dosage: UNK
     Route: 045
     Dates: start: 20110902
  5. ASPIRIN [Concomitant]
  6. MORPHINE [Concomitant]
  7. HYDROCODONE BITARTRATE + ACETAMINOPHEN [Concomitant]
     Dosage: 5-500MG
     Dates: start: 20110723
  8. IBUPROFEN [Concomitant]
     Dosage: 800 MG, UNK
     Route: 048
     Dates: start: 20110826
  9. LYRICA [Concomitant]
     Dosage: 50 MG, UNK
     Route: 048
     Dates: start: 20110826
  10. ATIVAN [Concomitant]
     Dosage: 0.5 MG, UNK
     Route: 048
     Dates: start: 20110826
  11. ERYTHROMYCIN WITH ETHANOL [Concomitant]
     Dosage: 2 %, UNK
     Route: 061
     Dates: start: 20110826
  12. VICODIN [Concomitant]
     Dosage: 5MG-500MG
     Route: 048
     Dates: start: 20110826
  13. ALBUTEROL [Concomitant]
     Dosage: UNK
     Route: 045
     Dates: start: 20110902
  14. CLOTRIMAZOLE W/BETAMETHASONE DIPROPIONAT [Concomitant]
     Dosage: UNK
     Dates: start: 20110818
  15. ERYTHROMYCIN WITH ETHANOL [Concomitant]
     Dosage: 2 %, UNK
     Route: 061
     Dates: start: 20110818
  16. LOTRISONE [Concomitant]
     Dosage: 1%-0.05%
     Route: 061
     Dates: start: 20110826
  17. KENALOG [Concomitant]
     Dosage: UNK
     Route: 030
     Dates: start: 20110826
  18. CEPHALEXIN [Concomitant]
     Dosage: 500 MG, UNK
     Route: 048
     Dates: start: 20110818
  19. ATARAX [Concomitant]
     Dosage: 50 MG, UNK
     Route: 048
     Dates: start: 20110826
  20. ATROVENT [Concomitant]
  21. PRILOSEC [Concomitant]
  22. ZOFRAN [Concomitant]
  23. METRONIDAZOLE [Concomitant]
     Dosage: 500 MG, UNK
     Route: 048
     Dates: start: 20110723
  24. TRAZODONE HYDROCHLORIDE [Concomitant]
     Dosage: 50 MG, UNK
     Route: 048
     Dates: start: 20110826
  25. NEXIUM [Concomitant]

REACTIONS (1)
  - PULMONARY EMBOLISM [None]
